FAERS Safety Report 24439171 (Version 3)
Quarter: 2024Q4

REPORT INFORMATION
  Report Type: Report from Study
  Country: US (occurrence: US)
  Receive Date: 20241015
  Receipt Date: 20241206
  Transmission Date: 20250115
  Serious: Yes (Hospitalization, Other)
  Sender: BOEHRINGER INGELHEIM
  Company Number: US-BoehringerIngelheim-2024-BI-044423

PATIENT
  Age: 65 Year
  Sex: Male

DRUGS (1)
  1. OFEV [Suspect]
     Active Substance: NINTEDANIB
     Indication: Idiopathic pulmonary fibrosis
     Route: 048
     Dates: start: 20240509

REACTIONS (8)
  - Cardiac operation [Unknown]
  - Thrombosis [Unknown]
  - Haemoptysis [Unknown]
  - Surgery [Unknown]
  - Catheterisation cardiac [Unknown]
  - Muscle strain [Unknown]
  - Diarrhoea [Unknown]
  - Anxiety [Unknown]

NARRATIVE: CASE EVENT DATE: 20240730
